FAERS Safety Report 5462891-5 (Version None)
Quarter: 2007Q3

REPORT INFORMATION
  Report Type: 
  Country: None (occurrence: None)
  Receive Date: 20070920
  Receipt Date: 20060817
  Transmission Date: 20080115
  Serious: No
  Sender: FDA-Public Use
  Company Number: US-BAUSCH-2006BL004939

PATIENT
  Age: 53 Year
  Sex: Male

DRUGS (3)
  1. NEOMYCIN AND POLYMYXIN B SULFATES AND HYDROCORTISONE OTIC SUSPENSION [Suspect]
     Indication: EAR INFECTION
     Route: 001
     Dates: start: 20060815, end: 20060822
  2. ZOLOFT [Concomitant]
  3. KLONOPIN [Concomitant]

REACTIONS (3)
  - FEELING ABNORMAL [None]
  - HYPOACUSIS [None]
  - LETHARGY [None]
